FAERS Safety Report 11052581 (Version 10)
Quarter: 2018Q1

REPORT INFORMATION
  Report Type: Spontaneous
  Country: US (occurrence: US)
  Receive Date: 20150421
  Receipt Date: 20180112
  Transmission Date: 20180508
  Serious: Yes (Other)
  Sender: FDA-Public Use
  Company Number: US-JNJFOC-20150208903

PATIENT
  Age: 60 Year
  Sex: Male

DRUGS (5)
  1. N ACETYLCYSTEINE [Concomitant]
     Active Substance: ACETYLCYSTEINE
     Route: 065
  2. COGENTIN [Suspect]
     Active Substance: BENZTROPINE MESYLATE
     Indication: PRODUCT USED FOR UNKNOWN INDICATION
     Route: 065
     Dates: start: 1985
  3. L GLUTAMINE [Concomitant]
     Active Substance: GLUTAMINE
     Route: 065
  4. RISPERDAL CONSTA [Suspect]
     Active Substance: RISPERIDONE
     Indication: PRODUCT USED FOR UNKNOWN INDICATION
     Route: 030
     Dates: start: 200708
  5. INFLAMASE FORTE [Concomitant]
     Active Substance: PREDNISOLONE SODIUM PHOSPHATE
     Route: 065

REACTIONS (17)
  - Brain neoplasm [Unknown]
  - Feeling cold [Unknown]
  - Malaise [Unknown]
  - Drug dose omission [Unknown]
  - Hyperchlorhydria [Recovered/Resolved]
  - Visual impairment [Unknown]
  - Asthenia [Recovering/Resolving]
  - Eye swelling [Unknown]
  - Headache [Recovered/Resolved]
  - Dysarthria [Unknown]
  - Drug hypersensitivity [Unknown]
  - Abdominal pain upper [Recovering/Resolving]
  - Eye disorder [Recovered/Resolved]
  - Suspected transmission of an infectious agent via product [Unknown]
  - Liver disorder [Unknown]
  - Adverse event [Unknown]
  - Mania [Recovering/Resolving]

NARRATIVE: CASE EVENT DATE: 201510
